FAERS Safety Report 9155669 (Version 1)
Quarter: 2013Q1

REPORT INFORMATION
  Report Type: Spontaneous
  Country: GB (occurrence: GB)
  Receive Date: 20130311
  Receipt Date: 20130311
  Transmission Date: 20140127
  Serious: Yes (Other)
  Sender: FDA-Public Use
  Company Number: PHHY2013GB021965

PATIENT
  Sex: Female
  Weight: 88 kg

DRUGS (1)
  1. TRAMADOL HYDROCHLORIDE [Suspect]
     Indication: TENDONITIS
     Dosage: 50 MG, QID
     Route: 048
     Dates: start: 20121204, end: 20130222

REACTIONS (5)
  - Flushing [Recovered/Resolved]
  - Hallucination [Recovered/Resolved]
  - Insomnia [Recovered/Resolved]
  - Hyperhidrosis [Recovered/Resolved]
  - Nausea [Recovered/Resolved]
